FAERS Safety Report 13910791 (Version 2)
Quarter: 2019Q4

REPORT INFORMATION
  Report Type: Spontaneous
  Country: DE (occurrence: DE)
  Receive Date: 20170828
  Receipt Date: 20191217
  Transmission Date: 20200122
  Serious: Yes (Congenital Anomaly)
  Sender: FDA-Public Use
  Company Number: DE-TEVA-798505GER

PATIENT
  Age: 1 Day
  Sex: Female
  Weight: 2.93 kg

DRUGS (3)
  1. FOLSAEURE [Concomitant]
     Active Substance: FOLIC ACID
     Indication: PROPHYLAXIS OF NEURAL TUBE DEFECT
     Dosage: 5 MILLIGRAM DAILY;
     Route: 064
     Dates: start: 20160601, end: 20160728
  2. CARBAMAZEPIN [Suspect]
     Active Substance: CARBAMAZEPINE
     Indication: GENERALISED TONIC-CLONIC SEIZURE
     Dosage: 400 MILLIGRAM DAILY;
     Route: 064
     Dates: start: 20160601, end: 20170302
  3. CEFTRIAXON [Concomitant]
     Active Substance: CEFTRIAXONE
     Indication: SYPHILIS
     Dosage: 2000 MILLIGRAM DAILY;
     Route: 064
     Dates: start: 20160720, end: 20160731

REACTIONS (2)
  - Microcephaly [Unknown]
  - Foetal exposure during pregnancy [Unknown]

NARRATIVE: CASE EVENT DATE: 20170302
